FAERS Safety Report 21597784 (Version 2)
Quarter: 2022Q4

REPORT INFORMATION
  Report Type: Spontaneous
  Country: KR (occurrence: KR)
  Receive Date: 20221115
  Receipt Date: 20221229
  Transmission Date: 20230112
  Serious: Yes (Other)
  Sender: FDA-Public Use
  Company Number: KR-PFIZER INC-PV202200098710

PATIENT
  Age: 12 Year
  Sex: Male
  Weight: 74 kg

DRUGS (1)
  1. COAGULATION FACTOR IX RECOMBINANT HUMAN [Suspect]
     Active Substance: COAGULATION FACTOR IX RECOMBINANT HUMAN
     Dosage: 8000 IU, WEEKLY
     Route: 042

REACTIONS (3)
  - Injection site haemorrhage [Unknown]
  - Syringe issue [Unknown]
  - Product leakage [Recovered/Resolved]

NARRATIVE: CASE EVENT DATE: 20221105
